FAERS Safety Report 9405226 (Version 1)
Quarter: 2013Q3

REPORT INFORMATION
  Report Type: Spontaneous
  Country: IT (occurrence: IT)
  Receive Date: 20130717
  Receipt Date: 20130717
  Transmission Date: 20140515
  Serious: Yes (Other)
  Sender: FDA-Public Use
  Company Number: PHHY2013IT074146

PATIENT
  Age: 56 Year
  Sex: Female

DRUGS (6)
  1. PACLITAXEL SANDOZ [Suspect]
     Indication: LUNG NEOPLASM MALIGNANT
     Dosage: 304.5 MG, UNK
     Route: 042
     Dates: start: 20130415, end: 20130415
  2. AVASTIN [Suspect]
     Indication: LUNG NEOPLASM MALIGNANT
     Dosage: 510 MG, UNK
     Route: 042
     Dates: start: 20130415, end: 20130415
  3. CARBOPLATINO TEVA [Suspect]
     Indication: LUNG NEOPLASM MALIGNANT
     Dosage: 531.3 MG, UNK
     Route: 042
     Dates: start: 20130415, end: 20130415
  4. RANIDIL [Concomitant]
     Dosage: 50 MG, UNK
     Route: 042
     Dates: start: 20130415, end: 20130415
  5. ONDANSETRONE HIKMA [Concomitant]
     Dosage: 8 MG, UNK
     Route: 042
     Dates: start: 20130415, end: 20130415
  6. SOLDESAM [Concomitant]
     Dosage: 8 MG, UNK
     Route: 042
     Dates: start: 20130415, end: 20130415

REACTIONS (4)
  - Toothache [Unknown]
  - Pelvic pain [Unknown]
  - Fatigue [Unknown]
  - Pain in extremity [Unknown]
